FAERS Safety Report 19188545 (Version 2)
Quarter: 2021Q2

REPORT INFORMATION
  Report Type: Spontaneous
  Country: JP (occurrence: JP)
  Receive Date: 20210427
  Receipt Date: 20210521
  Transmission Date: 20210717
  Serious: Yes (Other)
  Sender: FDA-Public Use
  Company Number: JP-ROCHE-2819069

PATIENT
  Age: 34 Year

DRUGS (2)
  1. ACTEMRA [Suspect]
     Active Substance: TOCILIZUMAB
     Indication: CYTOKINE RELEASE SYNDROME
     Dosage: MOST RECENT DOSE PRIOR TO AE 04/DEC/2020
     Route: 065
     Dates: start: 20201204
  2. KYMRIAH [Suspect]
     Active Substance: TISAGENLECLEUCEL
     Indication: DIFFUSE LARGE B-CELL LYMPHOMA REFRACTORY
     Dosage: 3.2*10E8 CELLS AND DOSE INTERVAL UNCERTAINTY
     Route: 041
     Dates: start: 20201202

REACTIONS (2)
  - Malignant neoplasm progression [Unknown]
  - Diffuse large B-cell lymphoma refractory [Unknown]
